FAERS Safety Report 26164691 (Version 2)
Quarter: 2025Q4

REPORT INFORMATION
  Report Type: Report from Study
  Country: PH (occurrence: PH)
  Receive Date: 20251216
  Receipt Date: 20251218
  Transmission Date: 20260119
  Serious: Yes (Other)
  Sender: OTSUKA
  Company Number: PH-MMM-Otsuka-ZVBP8MQI

PATIENT

DRUGS (1)
  1. TOLVAPTAN [Suspect]
     Active Substance: TOLVAPTAN
     Indication: Polyuria
     Dosage: 1 DF, QD (15 MG 1 TABLET ONCE A DAY FOR 4 DAYS)
     Route: 061
     Dates: start: 20251021, end: 202511

REACTIONS (1)
  - Dialysis [Unknown]

NARRATIVE: CASE EVENT DATE: 20251101
